FAERS Safety Report 4429429-2 (Version None)
Quarter: 2004Q3

REPORT INFORMATION
  Report Type: 
  Country: None (occurrence: None)
  Receive Date: 20040816
  Receipt Date: 20040730
  Transmission Date: 20050211
  Serious: Yes (Hospitalization)
  Sender: FDA-Public Use
  Company Number: 199239

PATIENT
  Age: 60 Year
  Sex: Female
  Weight: 99.7913 kg

DRUGS (2)
  1. AVONEX [Suspect]
     Indication: MULTIPLE SCLEROSIS
     Dosage: 30 MCG QW IM
     Route: 030
     Dates: start: 19960701, end: 20031201
  2. AVONEX [Suspect]
     Indication: MULTIPLE SCLEROSIS
     Dosage: 30 MCG QW IM
     Route: 030
     Dates: start: 20031201

REACTIONS (11)
  - ASTHENIA [None]
  - CALCINOSIS [None]
  - DECUBITUS ULCER [None]
  - FALL [None]
  - FEMUR FRACTURE [None]
  - INFLUENZA LIKE ILLNESS [None]
  - INJECTION SITE EXTRAVASATION [None]
  - INJECTION SITE MASS [None]
  - MYALGIA [None]
  - PAIN IN EXTREMITY [None]
  - URINARY INCONTINENCE [None]
